FAERS Safety Report 16272948 (Version 1)
Quarter: 2019Q2

REPORT INFORMATION
  Report Type: Spontaneous
  Country: US (occurrence: US)
  Receive Date: 20190503
  Receipt Date: 20190503
  Transmission Date: 20190711
  Serious: No
  Sender: FDA-Public Use
  Company Number: US-RADIUS HEALTH INC.-2018US003135

PATIENT
  Sex: Female

DRUGS (1)
  1. TYMLOS [Suspect]
     Active Substance: ABALOPARATIDE
     Indication: OSTEOPOROSIS POSTMENOPAUSAL
     Dosage: 80 MCG, QD
     Route: 058
     Dates: start: 201812, end: 20190228

REACTIONS (5)
  - Palpitations [Recovering/Resolving]
  - Back pain [Unknown]
  - Arthralgia [Recovering/Resolving]
  - Respiration abnormal [Recovering/Resolving]
  - Dysstasia [Recovering/Resolving]
